FAERS Safety Report 6321149-2 (Version None)
Quarter: 2009Q3

REPORT INFORMATION
  Report Type: 
  Country: None (occurrence: None)
  Receive Date: 20090822
  Receipt Date: 20090109
  Transmission Date: 20100115
  Serious: No
  Sender: FDA-Public Use
  Company Number: US-ABBOTT-08P-163-0491144-00

PATIENT
  Sex: Male
  Weight: 74.002 kg

DRUGS (7)
  1. NIASPAN [Suspect]
     Indication: BLOOD CHOLESTEROL INCREASED
     Route: 048
     Dates: start: 20060101, end: 20081203
  2. NIASPAN [Suspect]
     Route: 048
     Dates: start: 20081203
  3. SIMCOR [Concomitant]
     Indication: HIGH DENSITY LIPOPROTEIN DECREASED
     Dosage: 1000/20, ONCE PILL DAILY
     Route: 048
     Dates: start: 20081203
  4. SIMCOR [Concomitant]
     Indication: LOW DENSITY LIPOPROTEIN INCREASED
  5. ENBREL [Concomitant]
     Indication: RHEUMATOID ARTHRITIS
  6. METHOTREXATE [Concomitant]
     Indication: RHEUMATOID ARTHRITIS
  7. PREDNISONE [Concomitant]
     Indication: RHEUMATOID ARTHRITIS

REACTIONS (3)
  - FLUSHING [None]
  - HEADACHE [None]
  - HOT FLUSH [None]
